FAERS Safety Report 6859446-4 (Version None)
Quarter: 2010Q3

REPORT INFORMATION
  Report Type: 
  Country: None (occurrence: None)
  Receive Date: 20100719
  Receipt Date: 20080226
  Transmission Date: 20110219
  Serious: No
  Sender: FDA-Public Use
  Company Number: US-PFIZER INC-2008019442

PATIENT
  Sex: Female
  Weight: 62.7 kg

DRUGS (4)
  1. CHANTIX [Suspect]
     Indication: SMOKING CESSATION THERAPY
     Dates: start: 20080101
  2. ZOCOR [Concomitant]
     Indication: BLOOD CHOLESTEROL ABNORMAL
     Route: 048
  3. SYNTHROID [Concomitant]
     Indication: THYROID DISORDER
     Route: 048
  4. IBUPROFEN [Concomitant]
     Route: 048

REACTIONS (5)
  - ASTHENIA [None]
  - CRYING [None]
  - DEPRESSION [None]
  - HYPERSOMNIA [None]
  - PSYCHIATRIC SYMPTOM [None]
